FAERS Safety Report 8370506-1 (Version None)
Quarter: 2012Q2

REPORT INFORMATION
  Report Type: 
  Country: None (occurrence: None)
  Receive Date: 20120518
  Receipt Date: 20120515
  Transmission Date: 20120825
  Serious: No
  Sender: FDA-Public Use
  Company Number: US-PFIZER INC-2006038956

PATIENT
  Sex: Male
  Weight: 72 kg

DRUGS (34)
  1. LYRICA [Suspect]
     Indication: MUSCLE SPASTICITY
     Dosage: 75 MG, 2X/DAY
     Route: 048
     Dates: start: 20060314
  2. LYRICA [Suspect]
     Indication: GAIT DISTURBANCE
     Dosage: 75 MG, UNK
     Route: 048
  3. NEURONTIN [Suspect]
     Indication: GAIT DISTURBANCE
     Dosage: UNK
  4. BENTYL [Concomitant]
     Route: 065
  5. NABUMETONE [Concomitant]
     Route: 065
  6. PHENAZOPYRIDINE HCL TAB [Concomitant]
     Route: 065
  7. NAPROXEN (ALEVE) [Concomitant]
     Route: 065
  8. ULTRACET [Concomitant]
     Route: 065
  9. FLOMAX [Concomitant]
     Route: 065
  10. PERCOGESIC [Concomitant]
     Route: 065
  11. TROSPIUM [Concomitant]
     Indication: BLADDER DISORDER
     Dosage: 20 MG, 2X/DAY
     Route: 048
  12. HYDROMORPHONE HYDROCHLORIDE [Concomitant]
     Dosage: 16 MG, 4X/DAY
  13. AMLODIPINE BESILATE [Concomitant]
     Indication: HYPERTENSION
     Dosage: 10 MG, UNK
     Route: 048
  14. ATORVASTATIN CALCIUM [Concomitant]
     Indication: BLOOD CHOLESTEROL ABNORMAL
     Dosage: 40 MG, DAILY
  15. LYRICA [Suspect]
     Indication: MUSCULOSKELETAL STIFFNESS
     Dosage: 100 MG, UNK
     Route: 048
  16. HYOSCYAMINE [Concomitant]
     Route: 065
  17. ACIPHEX [Concomitant]
     Route: 065
  18. ACETAMINOPHEN [Concomitant]
     Route: 065
  19. CYMBALTA [Suspect]
     Indication: GAIT DISTURBANCE
     Dosage: UNK
  20. LIPITOR [Concomitant]
     Route: 065
  21. OMEPRAZOLE [Concomitant]
     Indication: GASTROOESOPHAGEAL REFLUX DISEASE
     Dosage: 40 MG, DAILY
  22. IRON [Concomitant]
     Indication: ANAEMIA
     Dosage: 25 MG, DAILY
  23. HYDROMORPHONE HYDROCHLORIDE [Concomitant]
     Indication: PAIN
     Dosage: 4 MG, 4X/DAY
  24. TAMSULOSIN HYDROCHLORIDE [Concomitant]
     Indication: BENIGN PROSTATIC HYPERPLASIA
     Dosage: 0.4 MG, 2X/DAY
  25. HYDROMORPHONE HYDROCHLORIDE [Concomitant]
     Dosage: 8 MG, 4X/DAY
  26. IBUPROFEN [Concomitant]
     Indication: PAIN
     Dosage: 200 MG, AS NEEDED
  27. TRIAMTERENE AND HYDROCHLOROTHIAZIDE [Concomitant]
     Route: 065
  28. IBUPROFEN (ADVIL) [Concomitant]
     Route: 065
  29. CHROMAGEN FORTE [Concomitant]
     Route: 065
  30. LISINOPRIL [Concomitant]
     Route: 065
  31. BETHANECHOL [Concomitant]
     Route: 065
  32. FENOFIBRATE [Concomitant]
     Indication: BLOOD CHOLESTEROL ABNORMAL
     Dosage: 150 MG, DAILY
  33. CETIRIZINE HYDROCHLORIDE [Concomitant]
     Indication: PRURITUS
     Dosage: UNK
  34. ASPIRIN [Concomitant]
     Indication: ANTICOAGULANT THERAPY
     Dosage: 325 MG, UNK

REACTIONS (4)
  - GAIT DISTURBANCE [None]
  - VISION BLURRED [None]
  - ALBUMIN GLOBULIN RATIO INCREASED [None]
  - DRUG INEFFECTIVE [None]
